FAERS Safety Report 12268043 (Version 1)
Quarter: 2016Q2

REPORT INFORMATION
  Report Type: Spontaneous
  Country: SE (occurrence: SE)
  Receive Date: 20160414
  Receipt Date: 20160414
  Transmission Date: 20160815
  Serious: Yes (Death, Life-Threatening)
  Sender: FDA-Public Use
  Company Number: SE-SA-2016SA068364

PATIENT
  Age: 69 Year
  Sex: Female

DRUGS (10)
  1. OMEPRAZOLE. [Concomitant]
     Active Substance: OMEPRAZOLE
  2. ALVEDON [Concomitant]
     Active Substance: ACETAMINOPHEN
     Dosage: 665 MG
  3. SELEXID [Concomitant]
     Active Substance: AMDINOCILLIN PIVOXIL HYDROCHLORIDE
     Dosage: 200MG
  4. ONDANSETRON [Concomitant]
     Active Substance: ONDANSETRON
     Dosage: 4 MG
  5. IMOVANE [Concomitant]
     Active Substance: ZOPICLONE
  6. PRIMPERAN [Concomitant]
     Active Substance: METOCLOPRAMIDE HYDROCHLORIDE
     Dosage: 10 MG
  7. TROMBYL [Suspect]
     Active Substance: ASPIRIN
     Indication: PROPHYLAXIS
     Dosage: STRENGTH: 75 MG
     Route: 065
     Dates: start: 20151210
  8. CLOPIDOGREL BISULFATE. [Suspect]
     Active Substance: CLOPIDOGREL BISULFATE
     Indication: PROPHYLAXIS
     Route: 065
     Dates: start: 20151218, end: 20160108
  9. CIPRALEX [Concomitant]
     Active Substance: ESCITALOPRAM OXALATE
     Dosage: 20 MG
  10. ATORVASTATIN [Concomitant]
     Active Substance: ATORVASTATIN

REACTIONS (2)
  - Rectal haemorrhage [Unknown]
  - Gastrointestinal haemorrhage [Fatal]

NARRATIVE: CASE EVENT DATE: 20160101
